FAERS Safety Report 11949440 (Version 1)
Quarter: 2016Q1

REPORT INFORMATION
  Report Type: Report from Study
  Country: US (occurrence: US)
  Receive Date: 20160126
  Receipt Date: 20160126
  Transmission Date: 20160526
  Serious: No
  Sender: FDA-Public Use
  Company Number: US-ABBVIE-15K-163-1356255-00

PATIENT
  Sex: Female
  Weight: 56.75 kg

DRUGS (6)
  1. HUMIRA [Suspect]
     Active Substance: ADALIMUMAB
     Indication: CROHN^S DISEASE
     Route: 065
     Dates: start: 201305, end: 201305
  2. HUMIRA [Suspect]
     Active Substance: ADALIMUMAB
     Route: 065
     Dates: start: 201306
  3. LIALDA [Suspect]
     Active Substance: MESALAMINE
     Route: 065
     Dates: start: 201005, end: 2013
  4. LIALDA [Suspect]
     Active Substance: MESALAMINE
     Indication: CROHN^S DISEASE
     Route: 065
     Dates: start: 201005, end: 201005
  5. LIALDA [Suspect]
     Active Substance: MESALAMINE
     Route: 065
     Dates: start: 2014
  6. HUMIRA [Suspect]
     Active Substance: ADALIMUMAB
     Route: 065
     Dates: start: 201305, end: 201305

REACTIONS (2)
  - Crohn^s disease [Recovered/Resolved]
  - Defaecation urgency [Recovered/Resolved]

NARRATIVE: CASE EVENT DATE: 2014
